FAERS Safety Report 8450038-2 (Version None)
Quarter: 2012Q2

REPORT INFORMATION
  Report Type: 
  Country: None (occurrence: None)
  Receive Date: 20120620
  Receipt Date: 20120608
  Transmission Date: 20120825
  Serious: Yes (Other)
  Sender: FDA-Public Use
  Company Number: US-SANOFI-AVENTIS-2012SA041380

PATIENT
  Age: 50 Year
  Sex: Female

DRUGS (2)
  1. SOLOSTAR [Suspect]
  2. LANTUS [Suspect]
     Dosage: DOSE:32 UNIT(S)
     Route: 058

REACTIONS (3)
  - ASTHMA [None]
  - DYSPHONIA [None]
  - VOCAL CORD DISORDER [None]
